FAERS Safety Report 6198157-8 (Version None)
Quarter: 2009Q2

REPORT INFORMATION
  Report Type: 
  Country: None (occurrence: None)
  Receive Date: 20090521
  Receipt Date: 20090430
  Transmission Date: 20091009
  Serious: Yes (Hospitalization)
  Sender: FDA-Public Use
  Company Number: GB-ROCHE-632793

PATIENT
  Sex: Female
  Weight: 77.2 kg

DRUGS (5)
  1. ORLISTAT [Suspect]
     Indication: OBESITY
     Route: 048
     Dates: start: 20090204, end: 20090410
  2. LEVOTHYROXINE SODIUM [Concomitant]
     Indication: HYPOTHYROIDISM
     Route: 048
  3. BENDROFLUMETHIAZIDE [Concomitant]
     Indication: BLOOD PRESSURE
     Route: 048
  4. DOMPERIDONE [Concomitant]
     Indication: NAUSEA
     Route: 048
  5. ACETAMINOPHEN W/ CODEINE [Concomitant]
     Indication: FIBROMYALGIA
     Dosage: DOSAGE: 3/8 A'S.
     Route: 048

REACTIONS (1)
  - DIVERTICULITIS [None]
